FAERS Safety Report 6039892-1 (Version None)
Quarter: 2009Q1

REPORT INFORMATION
  Report Type: 
  Country: None (occurrence: None)
  Receive Date: 20090116
  Receipt Date: 20090112
  Transmission Date: 20090719
  Serious: Yes (Hospitalization)
  Sender: FDA-Public Use
  Company Number: IT-BIOGENIDEC-2009BI001128

PATIENT
  Age: 42 Year
  Sex: Female

DRUGS (3)
  1. AVONEX [Suspect]
     Indication: MULTIPLE SCLEROSIS
     Route: 030
     Dates: start: 19940101, end: 20080120
  2. TEGRETOL [Concomitant]
  3. TEGRETOL [Concomitant]

REACTIONS (3)
  - COUGH [None]
  - PULMONARY EOSINOPHILIA [None]
  - Q FEVER [None]
